FAERS Safety Report 20758208 (Version 1)
Quarter: 2022Q2

REPORT INFORMATION
  Report Type: Spontaneous
  Country: US (occurrence: US)
  Receive Date: 20220427
  Receipt Date: 20220427
  Transmission Date: 20220720
  Serious: Yes (Hospitalization, Other)
  Sender: FDA-Public Use
  Company Number: US-ANIPHARMA-2022-US-009432

PATIENT
  Age: 75 Year
  Sex: Male
  Weight: 96.8 kg

DRUGS (7)
  1. FUROSEMIDE [Suspect]
     Active Substance: FUROSEMIDE
     Indication: Product used for unknown indication
  2. AMLODIPINE [Concomitant]
     Active Substance: AMLODIPINE BESYLATE
  3. ATORVASTATIN [Concomitant]
     Active Substance: ATORVASTATIN
  4. LOSARTAN [Concomitant]
     Active Substance: LOSARTAN
  5. OXYBUTYNIN [Concomitant]
     Active Substance: OXYBUTYNIN
  6. POTASSIUM CHLORIDE [Concomitant]
     Active Substance: POTASSIUM CHLORIDE
  7. METOPROLOL [Concomitant]
     Active Substance: METOPROLOL

REACTIONS (3)
  - Vitamin B1 decreased [Recovered/Resolved]
  - Delirium [Recovered/Resolved]
  - Encephalopathy [Recovered/Resolved]
